FAERS Safety Report 8899820 (Version 1)
Quarter: 2012Q4

REPORT INFORMATION
  Report Type: 
  Country: US (occurrence: US)
  Receive Date: 20121109
  Receipt Date: 20121109
  Transmission Date: 20130627
  Serious: Yes (Other)
  Sender: FDA-Public Use
  Company Number: US-BRISTOL-MYERS SQUIBB COMPANY-17085804

PATIENT
  Age: 70 Year
  Sex: Female
  Weight: 76 kg

DRUGS (3)
  1. KOMBIGLYZE XR [Suspect]
     Indication: DIABETES MELLITUS
     Dates: end: 201210
  2. GLUCOPHAGE [Suspect]
     Indication: DIABETES MELLITUS
     Dates: end: 201210
  3. GLIPIZIDE [Suspect]
     Dates: end: 201210

REACTIONS (8)
  - Pain [Recovering/Resolving]
  - Fall [Recovering/Resolving]
  - Ligament sprain [Recovering/Resolving]
  - Pain in extremity [Recovering/Resolving]
  - Drug ineffective [Recovering/Resolving]
  - Dyspnoea [Recovering/Resolving]
  - Lethargy [Recovering/Resolving]
  - Pruritus [Recovering/Resolving]
